FAERS Safety Report 20232095 (Version 2)
Quarter: 2021Q4

REPORT INFORMATION
  Report Type: Spontaneous
  Country: FR (occurrence: FR)
  Receive Date: 20211227
  Receipt Date: 20211231
  Transmission Date: 20220304
  Serious: Yes (Other)
  Sender: FDA-Public Use
  Company Number: None

PATIENT
  Age: 15 Year
  Sex: Female

DRUGS (1)
  1. NICOTINE POLACRILEX [Suspect]
     Active Substance: NICOTINE
     Indication: Product used for unknown indication
     Dosage: NICOTINE-BASED GUM DOSED AT 16MG / 1G AMOUNT INGESTED WOULD BE 12.8MG OR 0.8G OF NICOTINE.
     Route: 048
     Dates: start: 20211021, end: 20211021

REACTIONS (5)
  - Poisoning [Recovering/Resolving]
  - Headache [Recovering/Resolving]
  - Nausea [Recovering/Resolving]
  - Vomiting [Recovering/Resolving]
  - Tobacco abuse [Recovered/Resolved]

NARRATIVE: CASE EVENT DATE: 20211021
